FAERS Safety Report 12501299 (Version 1)
Quarter: 2016Q2

REPORT INFORMATION
  Report Type: Spontaneous
  Country: RS (occurrence: RS)
  Receive Date: 20160627
  Receipt Date: 20160627
  Transmission Date: 20160815
  Serious: Yes (Death, Hospitalization)
  Sender: FDA-Public Use
  Company Number: RS-CONCORDIA PHARMACEUTICALS INC.-GSH201606-002988

PATIENT
  Age: 41 Year
  Sex: Male

DRUGS (3)
  1. METOPROLOL. [Suspect]
     Active Substance: METOPROLOL
     Indication: HYPERTENSION
  2. DIAZEPAM. [Suspect]
     Active Substance: DIAZEPAM
  3. NIFEDIPINE. [Suspect]
     Active Substance: NIFEDIPINE
     Indication: HYPERTENSION

REACTIONS (4)
  - Toxicity to various agents [Fatal]
  - Cardiac arrest [Not Recovered/Not Resolved]
  - Atrioventricular block complete [Unknown]
  - Coma [Unknown]
